FAERS Safety Report 7421367-6 (Version None)
Quarter: 2011Q2

REPORT INFORMATION
  Report Type: 
  Country: None (occurrence: None)
  Receive Date: 20110418
  Receipt Date: 20110406
  Transmission Date: 20111010
  Serious: Yes (Other)
  Sender: FDA-Public Use
  Company Number: ZA-BRISTOL-MYERS SQUIBB COMPANY-15291743

PATIENT
  Age: 36 Year
  Sex: Female

DRUGS (2)
  1. TRUVADA [Suspect]
     Indication: HIV INFECTION
     Dosage: TRUVADA TABS
     Route: 048
     Dates: start: 20081217
  2. STOCRIN TABS [Suspect]
     Indication: HIV INFECTION
     Route: 048
     Dates: start: 20081217, end: 20100913

REACTIONS (3)
  - PREGNANCY [None]
  - LIVE BIRTH [None]
  - PREMATURE LABOUR [None]
